FAERS Safety Report 18484733 (Version 1)
Quarter: 2020Q4

REPORT INFORMATION
  Report Type: Spontaneous
  Country: US (occurrence: US)
  Receive Date: 20201109
  Receipt Date: 20201109
  Transmission Date: 20210114
  Serious: No
  Sender: FDA-Public Use
  Company Number: None

PATIENT
  Sex: Female

DRUGS (8)
  1. PROBIOTIC, [Concomitant]
  2. COQ10, [Concomitant]
  3. GONAL-F RFF, [Concomitant]
  4. OVIDREL, [Concomitant]
  5. PRENATAL, [Concomitant]
  6. LETROZOLE 2.5MG TAB [Suspect]
     Active Substance: LETROZOLE
     Indication: PRODUCT USED FOR UNKNOWN INDICATION
     Dosage: ?;OTHER FREQUENCY:QPM;?
     Route: 048
     Dates: start: 20200402
  7. CABERGOLINE, [Concomitant]
  8. ZYRTEC ALLGY [Concomitant]

REACTIONS (2)
  - Nausea [None]
  - Headache [None]
